FAERS Safety Report 13948550 (Version 1)
Quarter: 2017Q3

REPORT INFORMATION
  Report Type: Other
  Country: NO (occurrence: NO)
  Receive Date: 20170908
  Receipt Date: 20170908
  Transmission Date: 20171128
  Serious: Yes (Other)
  Sender: FDA-Public Use
  Company Number: NO-STRIDES ARCOLAB LIMITED-2017SP012509

PATIENT

DRUGS (1)
  1. METRONIDAZOLE. [Suspect]
     Active Substance: METRONIDAZOLE
     Indication: PRODUCT USED FOR UNKNOWN INDICATION
     Dosage: UNK
     Route: 065

REACTIONS (12)
  - Optic neuritis [Recovered/Resolved]
  - Papilloedema [Unknown]
  - Optic nerve disorder [Not Recovered/Not Resolved]
  - Musculoskeletal stiffness [Recovered/Resolved]
  - Vision blurred [Recovered/Resolved]
  - Visual acuity reduced [Unknown]
  - Temporal arteritis [Unknown]
  - Musculoskeletal pain [Recovered/Resolved]
  - Eye pain [Recovered/Resolved]
  - Blindness [Unknown]
  - Headache [Unknown]
  - Insomnia [Unknown]
